FAERS Safety Report 18202560 (Version 1)
Quarter: 2020Q3

REPORT INFORMATION
  Report Type: Spontaneous
  Country: CA (occurrence: CA)
  Receive Date: 20200827
  Receipt Date: 20200827
  Transmission Date: 20201103
  Serious: Yes (Hospitalization, Other)
  Sender: FDA-Public Use
  Company Number: CA-BRISTOL-MYERS SQUIBB COMPANY-BMS-2020-067171

PATIENT
  Age: 42 Year
  Sex: Female
  Weight: 106 kg

DRUGS (25)
  1. ACTEMRA [Suspect]
     Active Substance: TOCILIZUMAB
     Dosage: 444 MILLIGRAM
     Route: 042
  2. DICLOFENAC [Suspect]
     Active Substance: DICLOFENAC
     Dosage: 375 MILLIGRAM, Q4WK
     Route: 042
  3. DICLOFENAC [Suspect]
     Active Substance: DICLOFENAC
     Dosage: 300 MILLIGRAM, Q4WK
     Route: 042
  4. MOXILEAN [Suspect]
     Active Substance: AMOXICILLIN
     Indication: RHEUMATOID ARTHRITIS
     Dosage: 444 MILLIGRAM, Q4WK
     Route: 042
  5. MOXILEAN [Suspect]
     Active Substance: AMOXICILLIN
     Dosage: 350 MILLIGRAM, Q4WK
     Route: 042
  6. DICLOFENAC [Suspect]
     Active Substance: DICLOFENAC
     Indication: RHEUMATOID ARTHRITIS
     Dosage: 350 MILLIGRAM, Q4WK
     Route: 042
  7. MOXILEAN [Suspect]
     Active Substance: AMOXICILLIN
     Dosage: 300 MILLIGRAM, Q4WK
     Route: 042
  8. MOXILEAN [Suspect]
     Active Substance: AMOXICILLIN
     Dosage: 375 MILLIGRAM, Q4WK
     Route: 042
  9. DILTIAZEM. [Concomitant]
     Active Substance: DILTIAZEM
     Indication: PRODUCT USED FOR UNKNOWN INDICATION
     Route: 065
  10. DICLOFENAC [Suspect]
     Active Substance: DICLOFENAC
     Dosage: 444 MILLIGRAM, Q4WK
     Route: 042
  11. DICLOFENAC [Suspect]
     Active Substance: DICLOFENAC
     Dosage: 400 MILLIGRAM, Q4WK
     Route: 042
  12. MOXILEAN [Suspect]
     Active Substance: AMOXICILLIN
     Dosage: 400 MILLIGRAM, Q4WK
     Route: 042
  13. AVAPRO [Concomitant]
     Active Substance: IRBESARTAN
     Indication: PRODUCT USED FOR UNKNOWN INDICATION
     Route: 065
  14. ORENCIA [Suspect]
     Active Substance: ABATACEPT
     Indication: RHEUMATOID ARTHRITIS
     Dosage: 375 MILLIGRAM, Q4WK
     Route: 042
  15. ORENCIA [Suspect]
     Active Substance: ABATACEPT
     Dosage: 300 MILLIGRAM, Q4WK
     Route: 042
  16. ACTEMRA [Suspect]
     Active Substance: TOCILIZUMAB
     Indication: RHEUMATOID ARTHRITIS
     Dosage: 300 MILLIGRAM, Q4WK
     Route: 042
  17. ACTEMRA [Suspect]
     Active Substance: TOCILIZUMAB
     Dosage: 400 MILLIGRAM, Q4WK
     Route: 042
  18. MOXILEAN [Suspect]
     Active Substance: AMOXICILLIN
     Dosage: 400 MILLIGRAM, Q4WK
     Route: 042
  19. ARAVA [Concomitant]
     Active Substance: LEFLUNOMIDE
     Indication: PRODUCT USED FOR UNKNOWN INDICATION
     Route: 065
  20. ORENCIA [Suspect]
     Active Substance: ABATACEPT
     Dosage: 400 MILLIGRAM, Q4WK
     Route: 042
  21. ORENCIA [Suspect]
     Active Substance: ABATACEPT
     Dosage: 350 MILLIGRAM, Q4WK
     Route: 042
  22. ACTEMRA [Suspect]
     Active Substance: TOCILIZUMAB
     Dosage: 350 MILLIGRAM, Q4WK
     Route: 042
  23. ACTEMRA [Suspect]
     Active Substance: TOCILIZUMAB
     Dosage: 375 MILLIGRAM, Q4WK
     Route: 042
  24. CLONAZEPAM. [Concomitant]
     Active Substance: CLONAZEPAM
     Indication: PRODUCT USED FOR UNKNOWN INDICATION
     Route: 065
  25. ORENCIA [Suspect]
     Active Substance: ABATACEPT
     Dosage: 444 MILLIGRAM, Q4WK
     Route: 042

REACTIONS (55)
  - Blood pressure systolic increased [Not Recovered/Not Resolved]
  - Blood urine present [Not Recovered/Not Resolved]
  - Bone swelling [Not Recovered/Not Resolved]
  - Bronchial hyperreactivity [Not Recovered/Not Resolved]
  - Ear infection [Not Recovered/Not Resolved]
  - Headache [Not Recovered/Not Resolved]
  - Hepatic steatosis [Not Recovered/Not Resolved]
  - Hypertension [Not Recovered/Not Resolved]
  - Neck pain [Not Recovered/Not Resolved]
  - Poor venous access [Not Recovered/Not Resolved]
  - Pyrexia [Not Recovered/Not Resolved]
  - Somnolence [Not Recovered/Not Resolved]
  - Urticaria [Not Recovered/Not Resolved]
  - Blood pressure inadequately controlled [Not Recovered/Not Resolved]
  - Conjunctivitis [Not Recovered/Not Resolved]
  - Ligament sprain [Not Recovered/Not Resolved]
  - Nasopharyngitis [Not Recovered/Not Resolved]
  - Rhinorrhoea [Not Recovered/Not Resolved]
  - Sinusitis [Not Recovered/Not Resolved]
  - Urinary tract infection [Not Recovered/Not Resolved]
  - Urinary tract obstruction [Not Recovered/Not Resolved]
  - Weight decreased [Not Recovered/Not Resolved]
  - Weight increased [Not Recovered/Not Resolved]
  - Arthralgia [Not Recovered/Not Resolved]
  - Arthropathy [Not Recovered/Not Resolved]
  - Dizziness [Not Recovered/Not Resolved]
  - Hepatic enzyme increased [Not Recovered/Not Resolved]
  - Infusion related reaction [Not Recovered/Not Resolved]
  - Tinnitus [Not Recovered/Not Resolved]
  - Blood pressure increased [Not Recovered/Not Resolved]
  - Cystitis [Not Recovered/Not Resolved]
  - Decubitus ulcer [Not Recovered/Not Resolved]
  - Dysphonia [Not Recovered/Not Resolved]
  - Psoriasis [Not Recovered/Not Resolved]
  - Tympanic membrane perforation [Not Recovered/Not Resolved]
  - Weight abnormal [Not Recovered/Not Resolved]
  - Arthropod bite [Not Recovered/Not Resolved]
  - Heart rate decreased [Not Recovered/Not Resolved]
  - Incision site haemorrhage [Not Recovered/Not Resolved]
  - Nasal congestion [Not Recovered/Not Resolved]
  - Paranasal sinus discomfort [Not Recovered/Not Resolved]
  - Pneumonia [Not Recovered/Not Resolved]
  - Spinal pain [Not Recovered/Not Resolved]
  - Prescribed underdose [Unknown]
  - Infected bite [Not Recovered/Not Resolved]
  - Nephrolithiasis [Not Recovered/Not Resolved]
  - Skin swelling [Not Recovered/Not Resolved]
  - Ureteric obstruction [Not Recovered/Not Resolved]
  - Cellulitis [Not Recovered/Not Resolved]
  - Fibrous histiocytoma [Not Recovered/Not Resolved]
  - Thermal burn [Not Recovered/Not Resolved]
  - Myalgia [Not Recovered/Not Resolved]
  - Parotid gland enlargement [Not Recovered/Not Resolved]
  - Road traffic accident [Not Recovered/Not Resolved]
  - Skin infection [Not Recovered/Not Resolved]
